FAERS Safety Report 8792126 (Version 3)
Quarter: 2012Q4

REPORT INFORMATION
  Report Type: 
  Country: GB (occurrence: GB)
  Receive Date: 20120918
  Receipt Date: 20121017
  Transmission Date: 20130627
  Serious: Yes (Other)
  Sender: FDA-Public Use
  Company Number: GB-VERTEX PHARMACEUTICAL INC.-000000000000001387

PATIENT
  Age: 56 Year
  Sex: Male
  Weight: 75.6 kg

DRUGS (11)
  1. PEG INTERFERON [Concomitant]
     Route: 065
     Dates: start: 20120522
  2. RIBAVIRIN [Concomitant]
     Indication: HEPATITIS C
     Dosage: Dosage Form: Unspecified
     Route: 065
     Dates: start: 20120522
  3. RIBAVIRIN [Concomitant]
     Dosage: 1000 mg, qd
     Route: 065
     Dates: start: 20120522
  4. OMEPRAZOLE [Concomitant]
     Indication: GASTRIC DISORDER
     Dosage: 20 mg, qd
     Route: 065
  5. OMEPRAZOLE [Concomitant]
     Dosage: UNK
  6. OMEPRAZOLE [Concomitant]
     Dosage: Dosage Form: Unspecified
  7. OMEPRAZOLE [Concomitant]
     Dosage: Dosage Form: Unspecified
  8. CETIRIZINE [Concomitant]
     Indication: PRURITUS
     Dosage: Dosage Form: Unspecified
     Route: 065
     Dates: start: 20120621
  9. INCIVO [Suspect]
     Indication: HEPATITIS C
     Dosage: 700 mg, tid
     Route: 048
     Dates: start: 20120522, end: 20120814
  10. INCIVO [Suspect]
     Dosage: 750 mg, tid
     Route: 048
  11. PEG INTERFERON [Concomitant]
     Indication: HEPATITIS C
     Dosage: 1.5 UNK, UNK
     Route: 065
     Dates: start: 20120522

REACTIONS (8)
  - Rectal haemorrhage [Not Recovered/Not Resolved]
  - Insomnia [Unknown]
  - Cough [Unknown]
  - Anorectal discomfort [Not Recovered/Not Resolved]
  - Diarrhoea [Unknown]
  - Anal pruritus [Not Recovered/Not Resolved]
  - Anorectal discomfort [Unknown]
  - Diarrhoea [Unknown]
